FAERS Safety Report 25596905 (Version 4)
Quarter: 2025Q3

REPORT INFORMATION
  Report Type: Report from Study
  Country: US (occurrence: US)
  Receive Date: 20250723
  Receipt Date: 20250912
  Transmission Date: 20251021
  Serious: Yes (Hospitalization)
  Sender: MALLINCKRODT
  Company Number: US-MALLINCKRODT-MNK202504408

PATIENT
  Age: 47 Year
  Sex: Male
  Weight: 283 kg

DRUGS (7)
  1. CORTICOTROPIN [Suspect]
     Active Substance: CORTICOTROPIN
     Indication: Dry eye
     Route: 058
     Dates: start: 20250716, end: 2025
  2. TESTOSTERONE [Concomitant]
     Active Substance: TESTOSTERONE
  3. VITAMIN B12 [Concomitant]
     Active Substance: CYANOCOBALAMIN
  4. METHOTREXATE [Concomitant]
     Active Substance: METHOTREXATE
  5. CHOLESTEROL [Concomitant]
     Active Substance: CHOLESTEROL
  6. BENADRYL [Concomitant]
     Active Substance: DIPHENHYDRAMINE HYDROCHLORIDE
  7. LASIX [Concomitant]
     Active Substance: FUROSEMIDE
     Route: 042

REACTIONS (7)
  - Cardiac failure [Unknown]
  - Coronary artery disease [Unknown]
  - Nausea [Recovering/Resolving]
  - Malaise [Unknown]
  - Rash [Unknown]
  - Weight increased [Recovering/Resolving]
  - Contraindicated product administered [Unknown]

NARRATIVE: CASE EVENT DATE: 20250101
